FAERS Safety Report 13081249 (Version 4)
Quarter: 2017Q1

REPORT INFORMATION
  Report Type: Report from Study
  Country: JP (occurrence: JP)
  Receive Date: 20170103
  Receipt Date: 20170313
  Transmission Date: 20170428
  Serious: Yes (Hospitalization, Other)
  Sender: FDA-Public Use
  Company Number: IT-BRISTOL-MYERS SQUIBB COMPANY-BMS-2016-111670

PATIENT
  Age: 54 Year
  Sex: Male

DRUGS (1)
  1. NIVOLUMAB [Suspect]
     Active Substance: NIVOLUMAB
     Indication: ADENOCARCINOMA
     Dosage: 3 MG/KG, UNK
     Route: 042
     Dates: start: 20160316, end: 2016

REACTIONS (4)
  - Hemiplegia [Unknown]
  - Malignant neoplasm progression [Recovering/Resolving]
  - Carcinoembryonic antigen increased [Unknown]
  - Metastases to central nervous system [Unknown]
